FAERS Safety Report 19774058 (Version 1)
Quarter: 2021Q3

REPORT INFORMATION
  Report Type: Spontaneous
  Country: US (occurrence: US)
  Receive Date: 20210901
  Receipt Date: 20210901
  Transmission Date: 20211014
  Serious: No
  Sender: FDA-Public Use
  Company Number: US-TEVA-2021-US-1943922

PATIENT
  Age: 47 Year
  Sex: Female
  Weight: 73.03 kg

DRUGS (2)
  1. ASPIRIN. [Concomitant]
     Active Substance: ASPIRIN
  2. KETOCONAZOLE. [Suspect]
     Active Substance: KETOCONAZOLE

REACTIONS (1)
  - Drug ineffective [Unknown]
